FAERS Safety Report 16007220 (Version 2)
Quarter: 2019Q1

REPORT INFORMATION
  Report Type: Report from Study
  Country: AU (occurrence: AU)
  Receive Date: 20190226
  Receipt Date: 20190313
  Transmission Date: 20190418
  Serious: Yes (Hospitalization)
  Sender: FDA-Public Use
  Company Number: AU-ACTELION-A-CH2018-169157

PATIENT
  Age: 51 Year
  Sex: Female
  Weight: 60 kg

DRUGS (8)
  1. SILDENAFIL. [Suspect]
     Active Substance: SILDENAFIL
     Dosage: 75 MG, TID
     Route: 048
     Dates: start: 20150920
  2. SPIRONOLACTONE. [Concomitant]
     Active Substance: SPIRONOLACTONE
     Indication: PULMONARY ARTERIAL HYPERTENSION
     Dosage: 25 MG, OD
     Route: 048
     Dates: start: 20150915
  3. OPSUMIT [Suspect]
     Active Substance: MACITENTAN
     Indication: PULMONARY ARTERIAL HYPERTENSION
     Dosage: 10 MG, QD
     Route: 048
     Dates: start: 20150920
  4. SILDENAFIL. [Suspect]
     Active Substance: SILDENAFIL
     Indication: PULMONARY ARTERIAL HYPERTENSION
     Dosage: 50 MG, TID
     Route: 048
  5. FRUSEMIDE [Concomitant]
     Active Substance: FUROSEMIDE
     Indication: OEDEMA
     Dosage: 40 MG, BID
     Route: 048
     Dates: start: 20160429
  6. APIXABAN [Concomitant]
     Active Substance: APIXABAN
     Indication: PULMONARY ARTERIAL HYPERTENSION
     Dosage: 2.5 MG, OD
     Route: 048
  7. OXYGEN. [Concomitant]
     Active Substance: OXYGEN
     Indication: PULMONARY ARTERIAL HYPERTENSION
     Dosage: CONTINUOUS
  8. ILOPROST. [Concomitant]
     Active Substance: ILOPROST
     Dosage: 2.5 MG 6 TIMES A DAY
     Route: 055

REACTIONS (2)
  - Device related infection [Recovered/Resolved]
  - Dyspnoea [Recovered/Resolved]

NARRATIVE: CASE EVENT DATE: 20180305
